FAERS Safety Report 7158723-X (Version None)
Quarter: 2010Q4

REPORT INFORMATION
  Report Type: 
  Country: None (occurrence: None)
  Receive Date: 20101214
  Receipt Date: 20100428
  Transmission Date: 20110411
  Serious: Yes (Other)
  Sender: FDA-Public Use
  Company Number: GB-PFIZER INC-2010168873

PATIENT

DRUGS (1)
  1. LYRICA [Suspect]
     Dosage: 1200 MG, 1X/DAY

REACTIONS (1)
  - KETOACIDOSIS [None]
